FAERS Safety Report 7825162-5 (Version None)
Quarter: 2011Q4

REPORT INFORMATION
  Report Type: 
  Country: None (occurrence: None)
  Receive Date: 20111014
  Receipt Date: 20110928
  Transmission Date: 20120403
  Serious: Yes (Other)
  Sender: FDA-Public Use
  Company Number: TPA2011A05975

PATIENT
  Age: 86 Year
  Sex: Female

DRUGS (8)
  1. AMLODIPINE [Concomitant]
  2. REBAMIPIDE (REBAMIPIDE) [Concomitant]
  3. MENIETOL (BETAHISTINE MESILATE) [Concomitant]
  4. ONEALFA TABLET 1.0 (ALFACALCIDOL) [Suspect]
     Indication: OSTEOPOROSIS
     Dosage: 1 MCG (1 MCG, 1 IN 1 D) ORAL
     Route: 048
     Dates: start: 20110615
  5. FEREDAIM (FERROUS SODIUM CITRATE) [Concomitant]
  6. FEBURIC (FEBUXOSTAT) [Suspect]
     Indication: HYPERURICAEMIA
     Dosage: 10 MG (10 MG, 1 IN 1 D), 20 MG (20 MG, 1 IN 1 D) ORAL
     Route: 048
     Dates: start: 20110615, end: 20110629
  7. FEBURIC (FEBUXOSTAT) [Suspect]
     Indication: HYPERURICAEMIA
     Dosage: 10 MG (10 MG, 1 IN 1 D), 20 MG (20 MG, 1 IN 1 D) ORAL
     Route: 048
     Dates: start: 20110630, end: 20110811
  8. VOLTAREN [Concomitant]

REACTIONS (4)
  - FEELING COLD [None]
  - CARPAL TUNNEL SYNDROME [None]
  - HYPOAESTHESIA [None]
  - CERVICOBRACHIAL SYNDROME [None]
